FAERS Safety Report 22354696 (Version 1)
Quarter: 2023Q2

REPORT INFORMATION
  Report Type: Spontaneous
  Country: US (occurrence: None)
  Receive Date: 20230522
  Receipt Date: 20230522
  Transmission Date: 20230721
  Serious: Yes (Disabling)
  Sender: FDA-Public Use
  Company Number: None

PATIENT
  Age: 66 Year
  Sex: Female
  Weight: 90 kg

DRUGS (18)
  1. SPRAVATO [Suspect]
     Active Substance: ESKETAMINE
     Indication: Depression
     Dates: start: 20230214, end: 20230214
  2. REXULTI [Concomitant]
  3. WELLBUTRIN XL [Concomitant]
     Active Substance: BUPROPION HYDROCHLORIDE
  4. SYNTHROID [Concomitant]
     Active Substance: LEVOTHYROXINE SODIUM
  5. PROPRANALOL [Concomitant]
  6. ATORVASTATIN [Concomitant]
     Active Substance: ATORVASTATIN
  7. HYDROCHLOROTHIAZIDE\LISINOPRIL [Concomitant]
     Active Substance: HYDROCHLOROTHIAZIDE\LISINOPRIL
  8. POTASSIUM  LW DOSE [Concomitant]
  9. NALTREXONE [Concomitant]
  10. LEXAPRO [Concomitant]
     Active Substance: ESCITALOPRAM OXALATE
  11. AMBIEN [Concomitant]
     Active Substance: ZOLPIDEM TARTRATE
  12. QUVIVIQ [Concomitant]
     Active Substance: DARIDOREXANT
  13. ATARAX [Concomitant]
     Active Substance: HYDROXYZINE HYDROCHLORIDE
  14. XANAX [Concomitant]
  15. INDICA GUMMY [Concomitant]
  16. SATIVA GUMMY [Concomitant]
  17. ASPIRIN [Concomitant]
  18. VITAMIN D3 [Concomitant]
     Active Substance: CHOLECALCIFEROL

REACTIONS (13)
  - Nausea [None]
  - Vomiting [None]
  - Blood pressure decreased [None]
  - Oxygen saturation decreased [None]
  - Dissociation [None]
  - Post-traumatic stress disorder [None]
  - Skin discolouration [None]
  - Infusion related reaction [None]
  - Near death experience [None]
  - Nightmare [None]
  - Anxiety [None]
  - Insomnia [None]
  - General physical health deterioration [None]

NARRATIVE: CASE EVENT DATE: 20230214
